FAERS Safety Report 9387565 (Version 1)
Quarter: 2013Q3

REPORT INFORMATION
  Report Type: Spontaneous
  Country: US (occurrence: None)
  Receive Date: 20130702
  Receipt Date: 20130702
  Transmission Date: 20140515
  Serious: Yes (Death)
  Sender: FDA-Public Use
  Company Number: UTC-034558

PATIENT
  Age: 72 Year
  Sex: Female
  Weight: 68.7 kg

DRUGS (2)
  1. TYVASO [Suspect]
     Indication: COR PULMONALE CHRONIC
     Dosage: 18-54 MCG ( 4 IN 1 D), INHALATION
     Route: 055
  2. REVATIO(SILDENAFIL CITRATE)(UNKNOWN) [Concomitant]

REACTIONS (1)
  - Death [None]
